FAERS Safety Report 22372179 (Version 1)
Quarter: 2023Q2

REPORT INFORMATION
  Report Type: Report from Study
  Country: US (occurrence: US)
  Receive Date: 20230526
  Receipt Date: 20230526
  Transmission Date: 20230722
  Serious: Yes (Other)
  Sender: FDA-Public Use
  Company Number: US-UCBSA-2023026507

PATIENT
  Sex: Male

DRUGS (2)
  1. BRIVARACETAM [Suspect]
     Active Substance: BRIVARACETAM
     Indication: Seizure
     Dosage: 100MG-1 TAB 4 TIMES A DAY
  2. BRIVARACETAM [Suspect]
     Active Substance: BRIVARACETAM
     Dosage: 150 MILLIGRAM

REACTIONS (1)
  - Seizure [Unknown]
